FAERS Safety Report 10578108 (Version 4)
Quarter: 2014Q4

REPORT INFORMATION
  Report Type: Spontaneous
  Country: US (occurrence: US)
  Receive Date: 20141112
  Receipt Date: 20141229
  Transmission Date: 20150529
  Serious: Yes (Hospitalization, Other)
  Sender: FDA-Public Use
  Company Number: US-AUROBINDO-AUR-APL-2014-11795

PATIENT
  Age: 53 Year
  Sex: Female
  Weight: 83 kg

DRUGS (7)
  1. METFORMIN HYDROCHLORIDE. [Concomitant]
     Active Substance: METFORMIN HYDROCHLORIDE
     Indication: DIABETES MELLITUS
     Dosage: 1000 MG, DAILY
     Route: 065
  2. NORVASC [Suspect]
     Active Substance: AMLODIPINE BESYLATE
     Indication: HYPERTENSION
     Dosage: 10 MG, ONCE A DAY
     Route: 065
  3. LIPITOR [Suspect]
     Active Substance: ATORVASTATIN CALCIUM
     Indication: HYPERTENSION
     Dosage: 10 MG, ONCE A DAY
     Route: 065
  4. IBUPROFEN. [Suspect]
     Active Substance: IBUPROFEN
     Indication: BACK PAIN
     Dosage: 800 MG, 3 TIMES A DAY
     Route: 065
     Dates: start: 2006, end: 2008
  5. DIOVAN [Concomitant]
     Active Substance: VALSARTAN
     Indication: DIABETES MELLITUS
     Dosage: UNK, ONCE A DAY
     Route: 065
  6. METOPROLOL 50MG [Suspect]
     Active Substance: METOPROLOL
     Indication: HYPERTENSION
     Dosage: 50 MG, TWO TIMES A DAY
     Route: 065
  7. CELEBREX [Suspect]
     Active Substance: CELECOXIB
     Indication: BACK PAIN
     Dosage: 10 MG, ONCE A DAY
     Route: 065
     Dates: start: 2007, end: 2008

REACTIONS (14)
  - Gastrointestinal disorder [Unknown]
  - Gastric disorder [Not Recovered/Not Resolved]
  - Vomiting [Unknown]
  - Abdominal distension [Unknown]
  - Pain [Unknown]
  - Apparent death [Not Recovered/Not Resolved]
  - Abdominal adhesions [Not Recovered/Not Resolved]
  - Abdominal pain [Unknown]
  - Gallbladder disorder [Unknown]
  - Gastrointestinal disorder [Not Recovered/Not Resolved]
  - Arthropathy [Unknown]
  - Urinary incontinence [Not Recovered/Not Resolved]
  - Nerve compression [Not Recovered/Not Resolved]
  - Nausea [Unknown]

NARRATIVE: CASE EVENT DATE: 200810
